FAERS Safety Report 10576136 (Version 2)
Quarter: 2014Q4

REPORT INFORMATION
  Report Type: Spontaneous
  Country: FR (occurrence: FR)
  Receive Date: 20141111
  Receipt Date: 20141217
  Transmission Date: 20150529
  Serious: Yes (Life-Threatening, Hospitalization)
  Sender: FDA-Public Use
  Company Number: FR-SA-2014SA152429

PATIENT
  Age: 70 Year
  Sex: Female

DRUGS (2)
  1. AVASTIN [Suspect]
     Active Substance: BEVACIZUMAB
     Indication: BREAST NEOPLASM
     Dosage: DOSE:1 UNIT(S)
     Route: 042
     Dates: start: 2013, end: 20140304
  2. TAXOTERE [Suspect]
     Active Substance: DOCETAXEL
     Indication: BREAST NEOPLASM
     Route: 042
     Dates: start: 2013, end: 20140304

REACTIONS (3)
  - Lung disorder [Recovered/Resolved]
  - Respiratory distress [Recovered/Resolved]
  - Pulmonary alveolar haemorrhage [Recovered/Resolved]

NARRATIVE: CASE EVENT DATE: 20140304
